FAERS Safety Report 8614364-6 (Version None)
Quarter: 2012Q3

REPORT INFORMATION
  Report Type: 
  Country: None (occurrence: None)
  Receive Date: 20120823
  Receipt Date: 20120821
  Transmission Date: 20120928
  Serious: Yes (Disabling, Other)
  Sender: FDA-Public Use
  Company Number: CA-BAYER-2012-086102

PATIENT
  Age: 50 Year
  Sex: Female

DRUGS (2)
  1. AVELOX [Suspect]
     Dosage: 400 MG, QD
     Route: 048
  2. ADVIL [Concomitant]

REACTIONS (10)
  - DRY MOUTH [None]
  - GAIT DISTURBANCE [None]
  - MUSCULOSKELETAL PAIN [None]
  - JOINT RANGE OF MOTION DECREASED [None]
  - NECK PAIN [None]
  - PERIARTHRITIS [None]
  - APHONIA [None]
  - SLEEP TERROR [None]
  - TENDONITIS [None]
  - ARTHRALGIA [None]
